FAERS Safety Report 25886010 (Version 1)
Quarter: 2025Q4

REPORT INFORMATION
  Report Type: Report from Study
  Country: AR (occurrence: AR)
  Receive Date: 20251006
  Receipt Date: 20251006
  Transmission Date: 20260118
  Serious: Yes (Other)
  Sender: INCYTE
  Company Number: AR-002147023-NVSC2025AR152808

PATIENT
  Age: 9 Year
  Weight: 45 kg

DRUGS (2)
  1. RUXOLITINIB [Suspect]
     Active Substance: RUXOLITINIB
     Indication: Acute graft versus host disease
     Dosage: 5 MG, BID
  2. RUXOLITINIB [Suspect]
     Active Substance: RUXOLITINIB
     Dosage: 2.5 MG, Q12H

REACTIONS (1)
  - Neutropenia [Recovering/Resolving]
